FAERS Safety Report 12765556 (Version 1)
Quarter: 2016Q3

REPORT INFORMATION
  Report Type: Spontaneous
  Country: US (occurrence: US)
  Receive Date: 20160915
  Receipt Date: 20160915
  Transmission Date: 20161109
  Serious: No
  Sender: FDA-Public Use
  Company Number: None

PATIENT
  Age: 48 Year

DRUGS (2)
  1. TALTZ [Suspect]
     Active Substance: IXEKIZUMAB
     Indication: PSORIATIC ARTHROPATHY
     Route: 058
     Dates: start: 20160703, end: 20160704
  2. TALTZ [Suspect]
     Active Substance: IXEKIZUMAB
     Indication: PSORIASIS
     Route: 058
     Dates: start: 20160703, end: 20160704

REACTIONS (8)
  - Hypersensitivity [None]
  - Injection site erythema [None]
  - Dizziness [None]
  - Injection site warmth [None]
  - Chest discomfort [None]
  - Throat tightness [None]
  - Injection site swelling [None]
  - Diarrhoea [None]

NARRATIVE: CASE EVENT DATE: 20160703
